FAERS Safety Report 24422272 (Version 1)
Quarter: 2024Q4

REPORT INFORMATION
  Report Type: Spontaneous
  Country: NL (occurrence: NL)
  Receive Date: 20241010
  Receipt Date: 20241010
  Transmission Date: 20250115
  Serious: Yes (Life-Threatening, Other)
  Sender: GLAXOSMITHKLINE
  Company Number: None

PATIENT

DRUGS (4)
  1. ALBUTEROL [Suspect]
     Active Substance: ALBUTEROL
     Indication: Wheezing
     Dosage: 1620 ?G, 24D, 2 ?G/KG/MIN = 1620 ?G/HR
     Route: 065
     Dates: start: 20240417
  2. PREDNISOLONE [Suspect]
     Active Substance: PREDNISOLONE
     Indication: Wheezing
     Dosage: 7 MG, BID, 7MG (=7ML) 2 DD
     Route: 065
     Dates: start: 20240417
  3. CHOLECALCIFEROL [Concomitant]
     Active Substance: CHOLECALCIFEROL
     Indication: Product used for unknown indication
     Dosage: UNK, OIL DROPS 29,000 IU/ML (UNITS PER MILLILITER)
     Route: 065
  4. ACETAMINOPHEN [Concomitant]
     Active Substance: ACETAMINOPHEN
     Indication: Product used for unknown indication
     Dosage: 240 MG
     Route: 065

REACTIONS (1)
  - Hypokalaemia [Recovered/Resolved]

NARRATIVE: CASE EVENT DATE: 20240418
